FAERS Safety Report 6842469-9 (Version None)
Quarter: 2010Q3

REPORT INFORMATION
  Report Type: 
  Country: None (occurrence: None)
  Receive Date: 20100709
  Receipt Date: 20100624
  Transmission Date: 20110219
  Serious: Yes (Other)
  Sender: FDA-Public Use
  Company Number: GER/SPN/10/0013968

PATIENT
  Age: 31 Year
  Sex: Male

DRUGS (2)
  1. ALENDRONIC ACID (ALENDRONIC ACID) [Suspect]
     Indication: OSTEOGENESIS IMPERFECTA
     Dosage: 70 MG, 1 IN 1 WK, ORAL; 70 MG, 1 IN 1WK, ORAL
     Route: 048
     Dates: start: 20000101, end: 20060801
  2. ALENDRONIC ACID (ALENDRONIC ACID) [Suspect]
     Indication: OSTEOGENESIS IMPERFECTA
     Dosage: 70 MG, 1 IN 1 WK, ORAL; 70 MG, 1 IN 1WK, ORAL
     Route: 048
     Dates: start: 20080201

REACTIONS (3)
  - JAW FRACTURE [None]
  - PAIN [None]
  - SWELLING [None]
